FAERS Safety Report 10587994 (Version 1)
Quarter: 2014Q4

REPORT INFORMATION
  Report Type: Spontaneous
  Country: IT (occurrence: IT)
  Receive Date: 20141117
  Receipt Date: 20141117
  Transmission Date: 20150529
  Serious: Yes (Hospitalization)
  Sender: FDA-Public Use
  Company Number: IT-TEVA-521886ISR

PATIENT
  Age: 51 Year
  Sex: Male

DRUGS (4)
  1. CITALOPRAM [Suspect]
     Active Substance: CITALOPRAM HYDROBROMIDE
     Indication: DRUG ABUSE
     Dosage: 200 MG TOTAL
     Route: 048
     Dates: start: 20140821, end: 20140821
  2. XANAX [Suspect]
     Active Substance: ALPRAZOLAM
     Indication: DRUG ABUSE
     Dosage: 20 ML TOTAL
     Route: 048
     Dates: start: 20140821, end: 20140821
  3. EN - 1 MG/ML GOCCE ORALI, SOLUZIONE - ABBOTT S.R.L. [Suspect]
     Active Substance: DELORAZEPAM
     Indication: DRUG ABUSE
     Dosage: 10 ML TOTAL
     Route: 048
     Dates: start: 20140821, end: 20140821
  4. DEPAKIN CHRONO - 300 MG COMPRESSE A RILASCIO PROLUNGATO [Suspect]
     Active Substance: VALPROATE SODIUM
     Indication: DRUG ABUSE
     Dosage: 10 DF TOTAL
     Route: 048
     Dates: start: 20140821, end: 20140821

REACTIONS (3)
  - Asthenia [Unknown]
  - Vomiting [Unknown]
  - Drug abuse [Unknown]

NARRATIVE: CASE EVENT DATE: 20140821
